FAERS Safety Report 18293424 (Version 2)
Quarter: 2020Q4

REPORT INFORMATION
  Report Type: Spontaneous
  Country: JP (occurrence: JP)
  Receive Date: 20200922
  Receipt Date: 20201229
  Transmission Date: 20210113
  Serious: Yes (Hospitalization, Other)
  Sender: FDA-Public Use
  Company Number: JP-009507513-2009JPN001776J

PATIENT
  Age: 57 Year
  Sex: Male

DRUGS (7)
  1. LANSOPRAZOLE OD [Concomitant]
     Active Substance: LANSOPRAZOLE
     Dosage: 15 MILLIGRAM, QD
     Route: 048
  2. RANMARK [Concomitant]
     Active Substance: DENOSUMAB
     Dosage: UNK UNK, QM
     Route: 051
     Dates: start: 20200706
  3. ABRAXANE [Concomitant]
     Active Substance: PACLITAXEL
     Indication: NON-SMALL CELL LUNG CANCER
     Dosage: 100 MILLIGRAM/SQ. METER, EVERY 4 WEEKS
     Route: 041
     Dates: start: 20200703, end: 20200904
  4. ACETAMINOPHEN. [Concomitant]
     Active Substance: ACETAMINOPHEN
     Indication: CANCER PAIN
     Dosage: 200 MILLIGRAM, TID
     Route: 048
     Dates: start: 202006
  5. DENOTAS [Concomitant]
     Active Substance: CALCIUM CARBONATE\CHOLECALCIFEROL\MAGNESIUM CARBONATE
     Dosage: 1 DOSAGE FORM, QD
     Route: 048
     Dates: start: 202007
  6. KEYTRUDA [Suspect]
     Active Substance: PEMBROLIZUMAB
     Indication: NON-SMALL CELL LUNG CANCER
     Dosage: 200 MILLIGRAM/BODY
     Route: 041
     Dates: start: 20200703, end: 20200828
  7. CARBOPLATIN. [Concomitant]
     Active Substance: CARBOPLATIN
     Indication: NON-SMALL CELL LUNG CANCER
     Dosage: ACU6, EVERY 4 WEEKS
     Route: 041
     Dates: start: 20200703, end: 20200904

REACTIONS (5)
  - Cholangitis sclerosing [Recovering/Resolving]
  - Off label use [Unknown]
  - Autoimmune pancreatitis [Recovering/Resolving]
  - Immune-mediated hepatitis [Unknown]
  - Immune-mediated enterocolitis [Unknown]

NARRATIVE: CASE EVENT DATE: 2020
